FAERS Safety Report 23254543 (Version 1)
Quarter: 2023Q4

REPORT INFORMATION
  Report Type: Spontaneous
  Country: US (occurrence: None)
  Receive Date: 20231202
  Receipt Date: 20231202
  Transmission Date: 20240109
  Serious: Yes (Other)
  Sender: FDA-Public Use
  Company Number: US-drreddys-LIT/USA/23/0187482

PATIENT
  Age: 63 Year
  Sex: Male

DRUGS (4)
  1. GEMCITABINE [Suspect]
     Active Substance: GEMCITABINE
     Indication: Bladder cancer stage II
  2. CISPLATIN [Suspect]
     Active Substance: CISPLATIN
  3. ENFORTUMAB VEDOTIN [Concomitant]
     Active Substance: ENFORTUMAB VEDOTIN
     Indication: Bladder cancer stage III
     Dosage: 8 CYCLES.
  4. PEMBROLIZUMAB [Concomitant]
     Active Substance: PEMBROLIZUMAB
     Indication: Bladder cancer stage III
     Dosage: 5 CYCLES.

REACTIONS (4)
  - Cytopenia [Unknown]
  - Neurotoxicity [Unknown]
  - Disease progression [Unknown]
  - Drug ineffective [Unknown]
